FAERS Safety Report 9297511 (Version 2)
Quarter: 2013Q2

REPORT INFORMATION
  Report Type: Report from Study
  Country: FR (occurrence: FR)
  Receive Date: 20130520
  Receipt Date: 20130612
  Transmission Date: 20140414
  Serious: Yes (Other)
  Sender: FDA-Public Use
  Company Number: FR-GENZYME-CAMP-1002898

PATIENT
  Sex: Male

DRUGS (5)
  1. CAMPATH [Suspect]
     Indication: T-CELL PROLYMPHOCYTIC LEUKAEMIA
     Dosage: 30 MG, 3X/W
     Route: 042
     Dates: start: 20130108, end: 20130128
  2. CAMPATH [Suspect]
     Dosage: UNK
     Route: 065
     Dates: start: 20130304
  3. BACTRIM [Concomitant]
     Indication: PROPHYLAXIS
     Dosage: 1 DF, 3X/W
     Route: 065
     Dates: start: 20130108
  4. VALACICLOVIR [Concomitant]
     Indication: PROPHYLAXIS
     Dosage: 500 MG, BID
     Route: 065
     Dates: start: 20130108, end: 20130205
  5. VALACICLOVIR [Concomitant]
     Dosage: 500 MG, BID
     Route: 065
     Dates: start: 20130325

REACTIONS (1)
  - Cytomegalovirus viraemia [Recovered/Resolved]
